FAERS Safety Report 4829478-6 (Version None)
Quarter: 2005Q4

REPORT INFORMATION
  Report Type: 
  Country: None (occurrence: None)
  Receive Date: 20051116
  Receipt Date: 20050803
  Transmission Date: 20060501
  Serious: Yes (Hospitalization)
  Sender: FDA-Public Use
  Company Number: US-MERCK-0508USA01267

PATIENT
  Age: 46 Year
  Sex: Female
  Weight: 73 kg

DRUGS (13)
  1. VIOXX [Suspect]
     Indication: ARTHRITIS
     Route: 048
     Dates: start: 20000114, end: 20030723
  2. VASOTEC [Concomitant]
     Indication: HYPERTENSION
     Route: 048
     Dates: start: 19980101
  3. LIPITOR [Concomitant]
     Indication: HYPERCHOLESTEROLAEMIA
     Route: 065
     Dates: start: 19990701
  4. MOTRIN [Concomitant]
     Indication: PAIN
     Route: 065
     Dates: start: 19991001
  5. LORATADINE [Concomitant]
     Route: 065
  6. BENADRYL [Concomitant]
     Route: 065
  7. ROBAXIN [Concomitant]
     Route: 065
  8. ENALAPRIL MALEATE [Concomitant]
     Route: 065
  9. AVELOX [Concomitant]
     Route: 065
  10. PHENERGAN [Concomitant]
     Route: 065
  11. GUAIFENEX PSE [Concomitant]
     Route: 065
  12. DIFLUCAN [Concomitant]
     Route: 065
  13. CEFTIN [Concomitant]
     Route: 065

REACTIONS (2)
  - ACUTE MYOCARDIAL INFARCTION [None]
  - DIABETES MELLITUS NON-INSULIN-DEPENDENT [None]
